FAERS Safety Report 24098461 (Version 1)
Quarter: 2024Q3

REPORT INFORMATION
  Report Type: Spontaneous
  Country: US (occurrence: US)
  Receive Date: 20240716
  Receipt Date: 20240716
  Transmission Date: 20241017
  Serious: No
  Sender: JAZZ
  Company Number: US-JAZZ PHARMACEUTICALS-2024-US-005908

PATIENT
  Age: 3 Year
  Sex: Male

DRUGS (2)
  1. RYLAZE [Suspect]
     Active Substance: ASPARAGINASE ERWINIA CHRYSANTHEMI (RECOMBINANT)-RYWN
     Indication: Precursor T-lymphoblastic lymphoma/leukaemia
     Dosage: UNK
  2. CALASPARGASE PEGOL [Suspect]
     Active Substance: CALASPARGASE PEGOL
     Indication: Product used for unknown indication
     Dosage: UNK

REACTIONS (2)
  - Urticaria [Unknown]
  - Wheezing [Unknown]
